FAERS Safety Report 10474700 (Version 3)
Quarter: 2015Q1

REPORT INFORMATION
  Report Type: Spontaneous
  Country: CH (occurrence: CH)
  Receive Date: 20140925
  Receipt Date: 20150119
  Transmission Date: 20150720
  Serious: Yes (Other)
  Sender: FDA-Public Use
  Company Number: CH-ROCHE-1466050

PATIENT
  Sex: Male

DRUGS (1)
  1. XOLAIR [Suspect]
     Active Substance: OMALIZUMAB
     Indication: ASTHMA
     Route: 065

REACTIONS (5)
  - Asthma [Not Recovered/Not Resolved]
  - Guillain-Barre syndrome [Unknown]
  - Infection [Unknown]
  - Drug effect decreased [Unknown]
  - Bronchopulmonary aspergillosis allergic [Unknown]
